FAERS Safety Report 5542694-3 (Version None)
Quarter: 2007Q4

REPORT INFORMATION
  Report Type: 
  Country: None (occurrence: None)
  Receive Date: 20071123
  Receipt Date: 20070619
  Transmission Date: 20080405
  Serious: Yes (Other)
  Sender: FDA-Public Use
  Company Number: US-JNJFOC-20070604853

PATIENT
  Age: 63 Year
  Sex: Male
  Weight: 72.5755 kg

DRUGS (2)
  1. LEVAQUIN [Suspect]
     Indication: PROSTATITIS
     Dosage: 500 MG, 1 IN 1 DAY, ORAL
     Route: 048
     Dates: start: 20070501, end: 20070501
  2. ACUPRIL (QUINAPRIL) UNSPECIFIED [Concomitant]

REACTIONS (3)
  - TENDON OPERATION [None]
  - TENDON RUPTURE [None]
  - TENDONITIS [None]
